FAERS Safety Report 4788295-6 (Version None)
Quarter: 2005Q4

REPORT INFORMATION
  Report Type: 
  Country: None (occurrence: None)
  Receive Date: 20051003
  Receipt Date: 20050920
  Transmission Date: 20060501
  Serious: Yes (Other)
  Sender: FDA-Public Use
  Company Number: 2005131903

PATIENT
  Sex: Female
  Weight: 72.5755 kg

DRUGS (3)
  1. NORVASC [Suspect]
     Indication: HYPERTENSION
     Dosage: 5 MG (DAILY INTERVAL: EVERY DAY), ORAL
     Route: 048
  2. ATENOLOL [Concomitant]
  3. ZOCOR [Concomitant]

REACTIONS (4)
  - GINGIVAL BLEEDING [None]
  - GINGIVAL SWELLING [None]
  - JOINT SWELLING [None]
  - TOOTH LOSS [None]
